FAERS Safety Report 6675558-2 (Version None)
Quarter: 2010Q2

REPORT INFORMATION
  Report Type: 
  Country: None (occurrence: None)
  Receive Date: 20100409
  Receipt Date: 20100329
  Transmission Date: 20101027
  Serious: Yes (Other)
  Sender: FDA-Public Use
  Company Number: PHEH2006US08866

PATIENT
  Sex: Male

DRUGS (26)
  1. ZOMETA [Suspect]
  2. BACTROBAN                               /NET/ [Concomitant]
     Dosage: UNK
  3. CEPHALEXIN [Concomitant]
     Dosage: UNK
  4. CIPRO [Concomitant]
     Dosage: UNK
  5. HYDROCODONE BITARTRATE AND ACETAMINOPHEN [Concomitant]
     Dosage: UNK
  6. LOTRISONE [Concomitant]
     Dosage: UNK
  7. ZYBAN [Concomitant]
     Dosage: UNK
  8. FLOMAX [Concomitant]
     Dosage: UNK
  9. ALPRAZOLAM [Concomitant]
     Dosage: UNK
  10. APAP W/ CODEINE [Concomitant]
     Dosage: UNK
  11. FUROSEMIDE [Concomitant]
     Dosage: UNK
  12. SMZ-TMP DS [Concomitant]
     Dosage: UNK
  13. TRAMADOL HYDROCHLORIDE [Concomitant]
     Dosage: UNK
  14. ZYRTEC [Concomitant]
     Dosage: UNK
  15. MEGESTROL ACETATE [Concomitant]
     Dosage: UNK
  16. PREDNISONE [Concomitant]
     Dosage: UNK
  17. HYDROCORT [Concomitant]
     Dosage: UNK
  18. KETOCONAZOLE [Concomitant]
     Dosage: UNK
  19. RANITIDINE HCL [Concomitant]
     Dosage: UNK
  20. ULTRACET [Concomitant]
     Dosage: UNK
  21. NYSTATIN [Concomitant]
     Dosage: UNK
  22. DEXAMETHASON ^COPHAR^ [Concomitant]
     Dosage: UNK
  23. HYDROCHLOROTHIAZIDE [Concomitant]
     Dosage: UNK
  24. KLOR-CON [Concomitant]
     Dosage: UNK
  25. SPIRIVA [Concomitant]
     Dosage: UNK
  26. PROTONIX [Concomitant]

REACTIONS (10)
  - ANXIETY [None]
  - BRONCHITIS [None]
  - EXTRASKELETAL OSSIFICATION [None]
  - HILAR LYMPHADENOPATHY [None]
  - INJURY [None]
  - LUNG NEOPLASM [None]
  - METASTATIC NEOPLASM [None]
  - OSTEONECROSIS [None]
  - PAIN [None]
  - PROSTATE CANCER [None]
